FAERS Safety Report 10615619 (Version 1)
Quarter: 2014Q4

REPORT INFORMATION
  Report Type: Spontaneous
  Country: NO (occurrence: NO)
  Receive Date: 20141201
  Receipt Date: 20141201
  Transmission Date: 20150529
  Serious: Yes (Other)
  Sender: FDA-Public Use
  Company Number: NO-CIPLA LTD.-2014NO02259

PATIENT
  Sex: Female

DRUGS (3)
  1. CARBOPLATIN. [Suspect]
     Active Substance: CARBOPLATIN
     Indication: ADRENOCORTICAL CARCINOMA
     Dosage: FOUR COURSES OF CARBOPLATIN (AUC5, DAYS 1 AND 22)
  2. VINORELBINE [Suspect]
     Active Substance: VINORELBINE\VINORELBINE TARTRATE
     Indication: ADRENOCORTICAL CARCINOMA
     Dosage: 55 MG DAYS 1, 8 AND 22
  3. PEMETREXED [Suspect]
     Active Substance: PEMETREXED
     Indication: ADRENOCORTICAL CARCINOMA
     Dosage: FOUR COURSES OF PEMETREXED (800 MG DAYS 1 AND 22)

REACTIONS (3)
  - Wrong drug administered [Unknown]
  - Disease progression [None]
  - Fatigue [Unknown]
